FAERS Safety Report 4565847-X (Version None)
Quarter: 2005Q1

REPORT INFORMATION
  Report Type: 
  Country: None (occurrence: None)
  Receive Date: 20050131
  Receipt Date: 20050110
  Transmission Date: 20050727
  Serious: Yes (Hospitalization)
  Sender: FDA-Public Use
  Company Number: US-ABBOTT-05P-163-0286149-00

PATIENT
  Sex: Female
  Weight: 83.99 kg

DRUGS (17)
  1. HUMIRA [Suspect]
     Indication: RHEUMATOID ARTHRITIS
     Route: 058
     Dates: start: 20041001, end: 20050112
  2. ALBUTEROL [Concomitant]
     Indication: DRUG USE FOR UNKNOWN INDICATION
     Dates: start: 20041001, end: 20050112
  3. RHONCHO SALINE [Concomitant]
     Indication: DRUG USE FOR UNKNOWN INDICATION
     Dosage: SPRAY
  4. VICODIN [Concomitant]
     Indication: PAIN
     Route: 048
  5. CARISOPRODOL [Concomitant]
     Indication: ARTHRALGIA
     Route: 048
  6. CARISOPRODOL [Concomitant]
     Indication: FIBROMYALGIA
  7. AVANDAMET [Concomitant]
     Indication: DIABETES MELLITUS
     Route: 048
  8. ALPRAZOLAM [Concomitant]
     Indication: DRUG USE FOR UNKNOWN INDICATION
     Route: 048
  9. TEMAZEPAM [Concomitant]
     Indication: INSOMNIA
     Route: 048
  10. AMITRIPTYLINE HYDROCHLORIDE [Concomitant]
     Indication: INSOMNIA
     Route: 048
  11. METHOTREXATE SODIUM [Concomitant]
     Indication: RHEUMATOID ARTHRITIS
     Route: 048
  12. METHOTREXATE SODIUM [Concomitant]
     Indication: SYSTEMIC LUPUS ERYTHEMATOSUS
  13. METHOTREXATE SODIUM [Concomitant]
     Indication: FIBROMYALGIA
  14. FOLIC ACID [Concomitant]
     Indication: RHEUMATOID ARTHRITIS
     Route: 048
  15. FOLIC ACID [Concomitant]
     Indication: SYSTEMIC LUPUS ERYTHEMATOSUS
  16. FOLIC ACID [Concomitant]
     Indication: FIBROMYALGIA
  17. CLONAZEPAM [Concomitant]
     Indication: RESTLESS LEGS SYNDROME
     Route: 048

REACTIONS (7)
  - BLOOD GLUCOSE INCREASED [None]
  - FEELING ABNORMAL [None]
  - PAIN [None]
  - PNEUMONIA [None]
  - PRURITUS [None]
  - SINUSITIS [None]
  - URTICARIA [None]
